FAERS Safety Report 25525375 (Version 1)
Quarter: 2025Q3

REPORT INFORMATION
  Report Type: Spontaneous
  Country: US (occurrence: US)
  Receive Date: 20250707
  Receipt Date: 20250707
  Transmission Date: 20251021
  Serious: No
  Sender: NOVO NORDISK
  Company Number: US-NOVOPROD-1446648

PATIENT

DRUGS (1)
  1. ALHEMO [Suspect]
     Active Substance: CONCIZUMAB-MTCI
     Indication: Factor IX deficiency
     Dosage: 0.2 MG/KG, QD
     Route: 058
     Dates: start: 20250411

REACTIONS (1)
  - Injection site pain [Unknown]
